FAERS Safety Report 4865417-X (Version None)
Quarter: 2005Q4

REPORT INFORMATION
  Report Type: 
  Country: None (occurrence: None)
  Receive Date: 20051223
  Receipt Date: 20051216
  Transmission Date: 20060501
  Serious: Yes (Death)
  Sender: FDA-Public Use
  Company Number: DE-AVENTIS-200512935DE

PATIENT
  Sex: Male

DRUGS (1)
  1. APIDRA [Suspect]
     Indication: DIABETES MELLITUS
     Route: 058

REACTIONS (3)
  - HYPOGLYCAEMIA [None]
  - ORAL INTAKE REDUCED [None]
  - TREATMENT NONCOMPLIANCE [None]
